FAERS Safety Report 9352828 (Version 1)
Quarter: 2013Q2

REPORT INFORMATION
  Report Type: Spontaneous
  Country: US (occurrence: None)
  Receive Date: 20130614
  Receipt Date: 20130614
  Transmission Date: 20140414
  Serious: No
  Sender: FDA-Public Use
  Company Number: None

PATIENT
  Age: 39 Year
  Sex: Male

DRUGS (1)
  1. COPAXONE 20MG TEVA [Suspect]
     Dosage: 20MG  DAILY  SQ
     Route: 058
     Dates: start: 20120801, end: 20130608

REACTIONS (5)
  - Injection site pruritus [None]
  - Injection site rash [None]
  - Rash [None]
  - Rash [None]
  - Pruritus [None]
